APPROVED DRUG PRODUCT: LEVETIRACETAM
Active Ingredient: LEVETIRACETAM
Strength: 250MG
Dosage Form/Route: TABLET;ORAL
Application: A076919 | Product #001
Applicant: MYLAN PHARMACEUTICALS INC
Approved: Nov 4, 2008 | RLD: No | RS: No | Type: DISCN